FAERS Safety Report 16331389 (Version 2)
Quarter: 2019Q2

REPORT INFORMATION
  Report Type: Other
  Country: US (occurrence: US)
  Receive Date: 20190520
  Receipt Date: 20190531
  Transmission Date: 20190711
  Serious: Yes (Death, Other)
  Sender: FDA-Public Use
  Company Number: US-MSN LABORATORIES PRIVATE LIMITED-2067163

PATIENT
  Age: 53 Year
  Sex: Female

DRUGS (4)
  1. BORTEZOMIB. [Suspect]
     Active Substance: BORTEZOMIB
     Route: 065
  2. TEMOZOLOMIDE. [Concomitant]
     Active Substance: TEMOZOLOMIDE
     Route: 065
  3. CLOFARABINE. [Suspect]
     Active Substance: CLOFARABINE
     Indication: PARAGANGLION NEOPLASM
     Route: 065
  4. CAPECITABINE. [Concomitant]
     Active Substance: CAPECITABINE
     Route: 065

REACTIONS (3)
  - Product use in unapproved indication [Unknown]
  - Product use issue [Unknown]
  - Neoplasm progression [Fatal]
